FAERS Safety Report 5101239-2 (Version None)
Quarter: 2006Q3

REPORT INFORMATION
  Report Type: 
  Country: None (occurrence: None)
  Receive Date: 20060911
  Receipt Date: 20060901
  Transmission Date: 20061208
  Serious: Yes (Death)
  Sender: FDA-Public Use
  Company Number: US-BRISTOL-MYERS SQUIBB COMPANY-13497169

PATIENT
  Age: 67 Year
  Sex: Female
  Weight: 50 kg

DRUGS (5)
  1. ERBITUX [Suspect]
     Indication: COLON CANCER
     Route: 042
     Dates: start: 20060712, end: 20060712
  2. OXALIPLATIN [Suspect]
     Indication: COLON CANCER
     Route: 042
     Dates: start: 20060712, end: 20060712
  3. LEUCOVORIN [Suspect]
     Indication: COLON CANCER
     Route: 042
     Dates: start: 20060712, end: 20060712
  4. FLUOROURACIL [Suspect]
     Indication: COLON CANCER
     Dates: start: 20060714, end: 20060714
  5. AVASTIN [Suspect]
     Indication: COLON CANCER
     Dates: start: 20060712, end: 20060712

REACTIONS (1)
  - SUDDEN DEATH [None]
